FAERS Safety Report 10077189 (Version 2)
Quarter: 2014Q2

REPORT INFORMATION
  Report Type: Spontaneous
  Country: RS (occurrence: RS)
  Receive Date: 20140414
  Receipt Date: 20140502
  Transmission Date: 20141212
  Serious: Yes (Hospitalization)
  Sender: FDA-Public Use
  Company Number: PHHY2014RS040838

PATIENT
  Age: 52 Year
  Sex: Male

DRUGS (2)
  1. METHOTREXATE [Suspect]
     Indication: RHEUMATOID ARTHRITIS
     Dosage: 10 MG, QW
     Dates: start: 201110, end: 201311
  2. METHOTREXATE [Suspect]
     Dosage: 15 MG, QW
     Dates: start: 201311, end: 201402

REACTIONS (9)
  - Iron deficiency anaemia [Unknown]
  - Blood test abnormal [Unknown]
  - Malaise [Unknown]
  - Dizziness [Unknown]
  - Pallor [Unknown]
  - Asthenia [Unknown]
  - Fatigue [Unknown]
  - Rheumatoid arthritis [Unknown]
  - Arthralgia [Unknown]
